FAERS Safety Report 15675659 (Version 1)
Quarter: 2018Q4

REPORT INFORMATION
  Report Type: Spontaneous
  Country: BR (occurrence: BR)
  Receive Date: 20181130
  Receipt Date: 20181130
  Transmission Date: 20190205
  Serious: Yes (Life-Threatening, Hospitalization, Other)
  Sender: FDA-Public Use
  Company Number: BR-NOVOPROD-633765

PATIENT
  Age: 27 Year
  Sex: Male

DRUGS (3)
  1. MEDROXYPROGESTERONE ACETATE. [Suspect]
     Active Substance: MEDROXYPROGESTERONE ACETATE
     Indication: FEMINISATION ACQUIRED
     Dosage: 50 MG, QD
     Route: 065
  2. ALGESTONE ACETOPHENIDE [Suspect]
     Active Substance: ALGESTONE ACETOPHENIDE
     Indication: FEMINISATION ACQUIRED
     Dosage: 115.9 MG EVERY 15 DAYS
     Route: 065
  3. ESTRADIOL. [Suspect]
     Active Substance: ESTRADIOL
     Indication: FEMINISATION ACQUIRED
     Dosage: 7.1 MG EVERY 15 DAYS
     Route: 065

REACTIONS (4)
  - Systemic lupus erythematosus [Recovered/Resolved]
  - Lupus nephritis [Recovered/Resolved]
  - Photosensitivity reaction [Recovered/Resolved]
  - Off label use [Unknown]
